FAERS Safety Report 6942823-0 (Version None)
Quarter: 2010Q3

REPORT INFORMATION
  Report Type: 
  Country: None (occurrence: None)
  Receive Date: 20100826
  Receipt Date: 20100816
  Transmission Date: 20110219
  Serious: Yes (Hospitalization, Other)
  Sender: FDA-Public Use
  Company Number: CZ-ROCHE-722040

PATIENT
  Age: 2 Year
  Sex: Female

DRUGS (4)
  1. ROACTEMRA [Suspect]
     Dosage: FORM: INFUSION
     Route: 042
     Dates: start: 20100701, end: 20100812
  2. METHOTREXATE [Concomitant]
     Dosage: FREQUENCY: WEEKLY
     Route: 058
     Dates: start: 20100713, end: 20100813
  3. SOLU-MEDROL [Concomitant]
     Indication: ALLERGY PROPHYLAXIS
     Route: 042
     Dates: start: 20100812, end: 20100812
  4. MEDROL [Concomitant]
     Route: 048
     Dates: start: 20100615, end: 20100813

REACTIONS (8)
  - CYANOSIS [None]
  - DRUG HYPERSENSITIVITY [None]
  - INFUSION RELATED REACTION [None]
  - OFF LABEL USE [None]
  - PYREXIA [None]
  - RASH [None]
  - TACHYCARDIA [None]
  - TACHYPNOEA [None]
